FAERS Safety Report 16077340 (Version 2)
Quarter: 2019Q1

REPORT INFORMATION
  Report Type: Spontaneous
  Country: US (occurrence: US)
  Receive Date: 20190315
  Receipt Date: 20190319
  Transmission Date: 20190418
  Serious: Yes (Other)
  Sender: FDA-Public Use
  Company Number: US-009507513-1903USA005986

PATIENT
  Sex: Female
  Weight: 86.17 kg

DRUGS (1)
  1. NEXPLANON [Suspect]
     Active Substance: ETONOGESTREL
     Dosage: 1 ROD
     Route: 059
     Dates: start: 20190104, end: 20190313

REACTIONS (8)
  - Implant site erythema [Unknown]
  - Complication associated with device [Recovered/Resolved]
  - Device deployment issue [Recovered/Resolved]
  - Implant site reaction [Unknown]
  - Implant site pain [Unknown]
  - Device dislocation [Unknown]
  - Device expulsion [Recovered/Resolved]
  - Administration site scab [Unknown]

NARRATIVE: CASE EVENT DATE: 2019
